FAERS Safety Report 16178183 (Version 1)
Quarter: 2019Q2

REPORT INFORMATION
  Report Type: Spontaneous
  Country: US (occurrence: US)
  Receive Date: 20190306
  Receipt Date: 20190306
  Transmission Date: 20190711
  Serious: Yes (Hospitalization)
  Sender: FDA-Public Use
  Company Number: None

PATIENT
  Age: 75 Year
  Sex: Male
  Weight: 117.9 kg

DRUGS (3)
  1. PACLITAXEL PROTEIN-BOUND PARTICLES (ALBUMIN-BOUND) [Suspect]
     Active Substance: PACLITAXEL
     Dates: end: 20190226
  2. GEMCITABINE HYDROCHLORIDE. [Suspect]
     Active Substance: GEMCITABINE HYDROCHLORIDE
     Dates: end: 20190226
  3. CISPLATIN. [Suspect]
     Active Substance: CISPLATIN
     Dates: end: 20190226

REACTIONS (7)
  - Bacterial infection [None]
  - Bile culture positive [None]
  - Pneumonia [None]
  - Enterococcus test positive [None]
  - Blood culture positive [None]
  - Fluid overload [None]
  - Cholangitis [None]

NARRATIVE: CASE EVENT DATE: 20190228
